FAERS Safety Report 5345862-9 (Version None)
Quarter: 2007Q2

REPORT INFORMATION
  Report Type: 
  Country: None (occurrence: None)
  Receive Date: 20070426
  Receipt Date: 20070125
  Transmission Date: 20071010
  Serious: Yes (Life-Threatening)
  Sender: FDA-Public Use
  Company Number: 2007SP001727

PATIENT
  Age: 57 Year
  Sex: Female
  Weight: 112.4921 kg

DRUGS (2)
  1. ASMANEX TWISTHALER [Suspect]
     Indication: ASTHMA
     Dosage: 2 DF;BID;PO
     Route: 048
  2. QVAR 40 [Concomitant]

REACTIONS (3)
  - ASTHMA [None]
  - NO THERAPEUTIC RESPONSE [None]
  - PEAK EXPIRATORY FLOW RATE DECREASED [None]
